FAERS Safety Report 12350753 (Version 5)
Quarter: 2016Q3

REPORT INFORMATION
  Report Type: Report from Study
  Country: BR (occurrence: BR)
  Receive Date: 20160510
  Receipt Date: 20160919
  Transmission Date: 20161109
  Serious: Yes (Other)
  Sender: FDA-Public Use
  Company Number: BR-SA-2016SA088453

PATIENT
  Age: 39 Year
  Sex: Female
  Weight: 72 kg

DRUGS (1)
  1. FABRAZYME [Suspect]
     Active Substance: AGALSIDASE BETA
     Dosage: DOSE:  2 VIALS ON THE FIRST FORTNIGHT AND 3 VIALS IN THE NEXT WEEK.
     Route: 041
     Dates: start: 20120101

REACTIONS (3)
  - Fistula [Recovering/Resolving]
  - Infusion site thrombosis [Recovering/Resolving]
  - Poor venous access [Not Recovered/Not Resolved]

NARRATIVE: CASE EVENT DATE: 20160430
